FAERS Safety Report 15805024 (Version 1)
Quarter: 2019Q1

REPORT INFORMATION
  Report Type: Spontaneous
  Country: IT (occurrence: IT)
  Receive Date: 20190110
  Receipt Date: 20190110
  Transmission Date: 20190417
  Serious: Yes (Hospitalization)
  Sender: FDA-Public Use
  Company Number: IT-TEVA-2019-IT-996839

PATIENT
  Age: 90 Year
  Sex: Female

DRUGS (6)
  1. NEBIVOLOL. [Suspect]
     Active Substance: NEBIVOLOL
     Indication: ATRIAL FIBRILLATION
     Dosage: .25 DOSAGE FORMS DAILY;
     Route: 048
     Dates: start: 20180901, end: 20180901
  2. DELECIT [Concomitant]
     Active Substance: CHOLINE ALFOSCERATE
     Route: 065
  3. STILNOX [Concomitant]
     Active Substance: ZOLPIDEM TARTRATE
     Dosage: 10 MG
     Route: 065
  4. PROPAFENONE. [Suspect]
     Active Substance: PROPAFENONE
     Indication: ATRIAL FIBRILLATION
     Dosage: 850 MILLIGRAM DAILY;
     Route: 048
     Dates: start: 20180101, end: 20180901
  5. FLUXUM [Concomitant]
     Active Substance: PARNAPARIN SODIUM
     Route: 065
  6. DINAPRES [Concomitant]
     Active Substance: DELAPRIL HYDROCHLORIDE\INDAPAMIDE
     Dosage: 30 MG
     Route: 065

REACTIONS (2)
  - Tonic clonic movements [Recovering/Resolving]
  - Syncope [Recovering/Resolving]

NARRATIVE: CASE EVENT DATE: 20180901
